FAERS Safety Report 17669277 (Version 3)
Quarter: 2020Q4

REPORT INFORMATION
  Report Type: Spontaneous
  Country: US (occurrence: US)
  Receive Date: 20200415
  Receipt Date: 20201112
  Transmission Date: 20210113
  Serious: No
  Sender: FDA-Public Use
  Company Number: US-GLAXOSMITHKLINE-US2020AMR064442

PATIENT
  Sex: Female

DRUGS (1)
  1. ADVAIR DISKUS [Suspect]
     Active Substance: FLUTICASONE PROPIONATE\SALMETEROL XINAFOATE
     Indication: PRODUCT USED FOR UNKNOWN INDICATION
     Dosage: UNK, 250/50 MCG
     Route: 065
     Dates: start: 2017

REACTIONS (6)
  - Intentional underdose [Unknown]
  - Intentional product misuse [Unknown]
  - Fall [Unknown]
  - Intentional dose omission [Unknown]
  - Musculoskeletal stiffness [Unknown]
  - Wrist fracture [Unknown]

NARRATIVE: CASE EVENT DATE: 2019
